FAERS Safety Report 5213776-0 (Version None)
Quarter: 2007Q1

REPORT INFORMATION
  Report Type: 
  Country: None (occurrence: None)
  Receive Date: 20070119
  Receipt Date: 20070111
  Transmission Date: 20070707
  Serious: Yes (Other)
  Sender: FDA-Public Use
  Company Number: JP-PFIZER INC-2006136734

PATIENT
  Age: 60 Year
  Sex: Female

DRUGS (7)
  1. DETRUSITOL SR [Suspect]
     Dosage: DAILY DOSE:4MG
     Route: 048
  2. ALEVIATIN [Concomitant]
  3. RUEFRIEN [Concomitant]
     Route: 048
  4. ASPIRIN [Concomitant]
     Route: 048
  5. LASIX [Concomitant]
     Route: 048
  6. GASTER [Concomitant]
     Route: 048
  7. LOXOPROFEN [Concomitant]
     Route: 048

REACTIONS (1)
  - HEPATIC ENZYME INCREASED [None]
